FAERS Safety Report 5818558-4 (Version None)
Quarter: 2008Q3

REPORT INFORMATION
  Report Type: 
  Country: None (occurrence: None)
  Receive Date: 20080718
  Receipt Date: 20080709
  Transmission Date: 20090109
  Serious: Yes (Other)
  Sender: FDA-Public Use
  Company Number: CLOF-1000233

PATIENT
  Age: 13 Year
  Sex: Male
  Weight: 74.9 kg

DRUGS (1)
  1. CLOLAR [Suspect]
     Indication: ACUTE LYMPHOCYTIC LEUKAEMIA
     Dosage: INTRAVENOUS
     Route: 042

REACTIONS (3)
  - ACUTE LYMPHOCYTIC LEUKAEMIA RECURRENT [None]
  - FUNGAL INFECTION [None]
  - FUNGAL SKIN INFECTION [None]
